FAERS Safety Report 6485033-6 (Version None)
Quarter: 2009Q4

REPORT INFORMATION
  Report Type: 
  Country: None (occurrence: None)
  Receive Date: 20091203
  Receipt Date: 20091117
  Transmission Date: 20100525
  Serious: Yes (Hospitalization)
  Sender: FDA-Public Use
  Company Number: DSA_42091_2009

PATIENT
  Age: 82 Year
  Sex: Female

DRUGS (4)
  1. BI-TILDIEM (BI-TILDIEM - DILTIZEM) 120 MG (NOT SPECIFIED) [Suspect]
     Indication: DRUG USE FOR UNKNOWN INDICATION
     Dosage: (120 MG BID ORAL)
     Route: 048
     Dates: start: 20090801
  2. ATROVENT [Concomitant]
  3. FLUTICASONE W/SALMETEROL [Concomitant]
  4. SPIRIVA [Concomitant]

REACTIONS (2)
  - ASTHMA [None]
  - DIVERTICULITIS [None]
